FAERS Safety Report 8517695-3 (Version None)
Quarter: 2012Q3

REPORT INFORMATION
  Report Type: 
  Country: None (occurrence: None)
  Receive Date: 20120718
  Receipt Date: 20120712
  Transmission Date: 20120928
  Serious: Yes (Other)
  Sender: FDA-Public Use
  Company Number: US-AMGEN-USASP2011049232

PATIENT
  Age: 53 Year
  Sex: Male
  Weight: 95.238 kg

DRUGS (2)
  1. ENBREL [Suspect]
  2. ENBREL [Suspect]
     Indication: PSORIASIS
     Dosage: 50 MG, QWK
     Dates: start: 20090401, end: 20110301

REACTIONS (3)
  - INCISIONAL HERNIA [None]
  - POST PROCEDURAL COMPLICATION [None]
  - NEURILEMMOMA BENIGN [None]
